FAERS Safety Report 9597622 (Version 1)
Quarter: 2013Q4

REPORT INFORMATION
  Report Type: Other
  Country: JP (occurrence: JP)
  Receive Date: 20131004
  Receipt Date: 20131004
  Transmission Date: 20140711
  Serious: Yes (Death, Other)
  Sender: FDA-Public Use
  Company Number: JP-BRISTOL-MYERS SQUIBB COMPANY-19489376

PATIENT
  Age: 56 Year
  Sex: Male

DRUGS (4)
  1. CARBOPLATIN [Suspect]
     Indication: DIFFUSE LARGE B-CELL LYMPHOMA
     Dosage: FOR 1 HOUR ON DAY 7 TO 4
     Route: 042
  2. ETOPOSIDE [Suspect]
     Indication: DIFFUSE LARGE B-CELL LYMPHOMA
     Dosage: FOR 3 HOUR ON DAY 6 TO 4
     Route: 042
  3. CYCLOPHOSPHAMIDE [Suspect]
     Indication: DIFFUSE LARGE B-CELL LYMPHOMA
     Dosage: FOR 3 HOUR ON DAY 3 TO 2
     Route: 042
  4. RANIMUSTINE [Suspect]
     Indication: DIFFUSE LARGE B-CELL LYMPHOMA
     Dosage: FOR 1 HOUR ON DAY 8TO3
     Route: 042

REACTIONS (4)
  - Venoocclusive liver disease [Fatal]
  - Septic shock [Unknown]
  - Acute lung injury [Unknown]
  - Renal impairment [Unknown]
